FAERS Safety Report 7574255-9 (Version None)
Quarter: 2011Q2

REPORT INFORMATION
  Report Type: 
  Country: None (occurrence: None)
  Receive Date: 20110627
  Receipt Date: 20110621
  Transmission Date: 20111010
  Serious: Yes (Death)
  Sender: FDA-Public Use
  Company Number: US-PFIZER INC-2008154144

PATIENT
  Age: 23 Year
  Sex: Female

DRUGS (4)
  1. VENLAFAXINE HCL [Suspect]
     Dosage: UNK
     Route: 048
     Dates: start: 20070101, end: 20070101
  2. TRAZODONE HCL [Suspect]
     Dosage: UNK
     Route: 048
     Dates: start: 20070101, end: 20070101
  3. CLOZAPINE [Suspect]
     Dosage: UNK
     Route: 048
     Dates: start: 20070101, end: 20070101
  4. CYCLOBENZAPRINE [Suspect]
     Dosage: UNK
     Route: 048
     Dates: start: 20070101, end: 20070101

REACTIONS (1)
  - COMPLETED SUICIDE [None]
